FAERS Safety Report 24442429 (Version 1)
Quarter: 2024Q4

REPORT INFORMATION
  Report Type: Report from Study
  Country: US (occurrence: US)
  Receive Date: 20241016
  Receipt Date: 20241016
  Transmission Date: 20250114
  Serious: Yes (Other)
  Sender: TEVA
  Company Number: US-TEVA-VS-3253965

PATIENT
  Age: 53 Year
  Sex: Female

DRUGS (1)
  1. AUSTEDO XR [Suspect]
     Active Substance: DEUTETRABENAZINE
     Indication: Dystonia
     Route: 048

REACTIONS (4)
  - Diabetes mellitus [Unknown]
  - Dyskinesia [Unknown]
  - Product supply issue [Unknown]
  - Product use in unapproved indication [Unknown]
